FAERS Safety Report 6801999-6 (Version None)
Quarter: 2010Q2

REPORT INFORMATION
  Report Type: 
  Country: None (occurrence: None)
  Receive Date: 20100629
  Receipt Date: 20100622
  Transmission Date: 20101027
  Serious: Yes (Hospitalization)
  Sender: FDA-Public Use
  Company Number: PHHO2010US07178

PATIENT
  Sex: Male
  Weight: 60.33 kg

DRUGS (3)
  1. AFINITOR [Suspect]
     Indication: NEOPLASM MALIGNANT
     Dosage: 30MG DAY 1 + 8
     Route: 048
     Dates: start: 20100419
  2. AFINITOR [Suspect]
     Dosage: UNK
  3. EPO 906 [Suspect]
     Indication: NEOPLASM MALIGNANT
     Dosage: 13MG
     Route: 042
     Dates: start: 20100419

REACTIONS (9)
  - ASPIRATION PLEURAL CAVITY [None]
  - DEHYDRATION [None]
  - DIARRHOEA [None]
  - DYSPNOEA [None]
  - LUNG INFILTRATION [None]
  - NAUSEA [None]
  - PLEURAL EFFUSION [None]
  - PULMONARY CONGESTION [None]
  - VOMITING [None]
